FAERS Safety Report 4906746-0 (Version None)
Quarter: 2006Q1

REPORT INFORMATION
  Report Type: 
  Country: None (occurrence: None)
  Receive Date: 20060209
  Receipt Date: 20060126
  Transmission Date: 20060701
  Serious: Yes (Other)
  Sender: FDA-Public Use
  Company Number: FR-ROCHE-433829

PATIENT
  Age: 5 Year
  Sex: Male

DRUGS (1)
  1. CELLCEPT [Suspect]
     Indication: NEPHROTIC SYNDROME
     Route: 065
     Dates: start: 20020915

REACTIONS (2)
  - DYSKINESIA [None]
  - PARAESTHESIA [None]
